FAERS Safety Report 8303975-3 (Version None)
Quarter: 2012Q2

REPORT INFORMATION
  Report Type: 
  Country: None (occurrence: None)
  Receive Date: 20120423
  Receipt Date: 20120416
  Transmission Date: 20120825
  Serious: Yes (Other)
  Sender: FDA-Public Use
  Company Number: HR-ASTELLAS-2012EU002860

PATIENT
  Sex: Female

DRUGS (1)
  1. SOLIFENACIN SUCCINATE [Suspect]
     Indication: HYPERTONIC BLADDER
     Dosage: 5 MG, UID/QD
     Route: 065

REACTIONS (1)
  - OCULAR HYPERTENSION [None]
